FAERS Safety Report 5659824-5 (Version None)
Quarter: 2008Q1

REPORT INFORMATION
  Report Type: 
  Country: None (occurrence: None)
  Receive Date: 20080311
  Receipt Date: 20070725
  Transmission Date: 20080703
  Serious: No
  Sender: FDA-Public Use
  Company Number: US-BAYER-200712374BCC

PATIENT
  Age: 52 Year
  Sex: Female
  Weight: 71 kg

DRUGS (3)
  1. ALEVE [Suspect]
     Indication: BURSITIS
     Route: 048
     Dates: start: 20070101
  2. PEGASYS [Concomitant]
     Indication: HEPATITIS C
     Dates: start: 20070104, end: 20070627
  3. RIBAVIRIN [Concomitant]
     Indication: HEPATITIS C
     Dates: start: 20070104, end: 20070627

REACTIONS (1)
  - BURSITIS [None]
